FAERS Safety Report 7788463-5 (Version None)
Quarter: 2011Q3

REPORT INFORMATION
  Report Type: 
  Country: None (occurrence: None)
  Receive Date: 20110930
  Receipt Date: 20110923
  Transmission Date: 20111222
  Serious: Yes (Hospitalization, Other)
  Sender: FDA-Public Use
  Company Number: US-AMGEN-USASP2011014993

PATIENT
  Age: 71 Year
  Sex: Female
  Weight: 69.9 kg

DRUGS (8)
  1. IMMUNOGLOBULINS [Concomitant]
     Indication: IDIOPATHIC THROMBOCYTOPENIC PURPURA
     Dosage: UNK
     Route: 042
     Dates: start: 20091207
  2. FOLIC ACID [Concomitant]
     Dosage: UNK UNK, QD
     Dates: start: 20100909
  3. TYLENOL (CAPLET) [Concomitant]
     Dosage: UNK UNK, PRN
  4. AMBIEN [Concomitant]
     Dosage: 10 MG, QHS
  5. HYDROCODONE [Concomitant]
     Dosage: UNK UNK, PRN
  6. BLOOD TRANSFUSION, AUXILIARY PRODUCTS [Concomitant]
     Dosage: UNK
     Route: 042
     Dates: start: 20110321, end: 20110321
  7. NPLATE [Suspect]
     Indication: IDIOPATHIC THROMBOCYTOPENIC PURPURA
     Dosage: 210 MUG, QWK
     Route: 058
     Dates: start: 20110111
  8. RITUXAN [Concomitant]
     Dosage: UNK UNK, QWK

REACTIONS (16)
  - COUGH [None]
  - PLATELET COUNT DECREASED [None]
  - TRANSFUSION REACTION [None]
  - DYSGEUSIA [None]
  - DECREASED APPETITE [None]
  - CONFUSIONAL STATE [None]
  - PLATELET COUNT INCREASED [None]
  - JAUNDICE [None]
  - HAEMOGLOBIN DECREASED [None]
  - THROMBOCYTOPENIA [None]
  - LYMPHOPENIA [None]
  - PURPURA [None]
  - NAUSEA [None]
  - PETECHIAE [None]
  - FATIGUE [None]
  - REPETITIVE SPEECH [None]
